FAERS Safety Report 7812494 (Version 4)
Quarter: 2013Q3

REPORT INFORMATION
  Report Type: Report from Study
  Country: US (occurrence: US)
  Receive Date: 20110215
  Receipt Date: 20130719
  Transmission Date: 20140515
  Serious: Yes (Hospitalization)
  Sender: FDA-Public Use
  Company Number: US-JNJFOC-20110202415

PATIENT
  Age: 12 Year
  Sex: Male
  Weight: 31.9 kg

DRUGS (7)
  1. REMICADE [Suspect]
     Indication: INFLAMMATORY BOWEL DISEASE
     Route: 042
  2. REMICADE [Suspect]
     Indication: INFLAMMATORY BOWEL DISEASE
     Route: 042
     Dates: start: 20101105
  3. PREVACID [Concomitant]
     Route: 048
  4. LORATADINE [Concomitant]
     Route: 048
  5. IRON SUPPLEMENT [Concomitant]
     Route: 048
  6. MULTIVITAMINS [Concomitant]
  7. VITAMIN D [Concomitant]
     Route: 048

REACTIONS (1)
  - Large intestine perforation [Recovered/Resolved]
